FAERS Safety Report 14181814 (Version 5)
Quarter: 2018Q1

REPORT INFORMATION
  Report Type: Report from Study
  Country: GB (occurrence: GB)
  Receive Date: 20171113
  Receipt Date: 20180108
  Transmission Date: 20180508
  Serious: Yes (Other)
  Sender: FDA-Public Use
  Company Number: GB-ROCHE-2010386

PATIENT
  Sex: Female

DRUGS (1)
  1. ROACTEMRA [Suspect]
     Active Substance: TOCILIZUMAB
     Indication: RHEUMATOID ARTHRITIS
     Route: 058
     Dates: start: 20171003

REACTIONS (11)
  - Diabetes mellitus [Unknown]
  - Weight decreased [Unknown]
  - Diarrhoea [Unknown]
  - Infection [Unknown]
  - Infection susceptibility increased [Unknown]
  - Gastric disorder [Unknown]
  - Malaise [Unknown]
  - Urinary tract infection [Unknown]
  - Decreased appetite [Unknown]
  - Diabetes mellitus inadequate control [Unknown]
  - Abdominal pain [Unknown]
